FAERS Safety Report 5782622-9 (Version None)
Quarter: 2008Q2

REPORT INFORMATION
  Report Type: 
  Country: None (occurrence: None)
  Receive Date: 20080619
  Receipt Date: 20080619
  Transmission Date: 20081010
  Serious: Yes (Other)
  Sender: FDA-Public Use
  Company Number: None

PATIENT
  Sex: Female
  Weight: 61.2356 kg

DRUGS (1)
  1. CAPZASIN HP, CAPSAICIN 0.1%, CHATTEM [Suspect]
     Dosage: 5G ONCE TOPICAL
     Route: 061
     Dates: start: 20080526

REACTIONS (3)
  - BURNING SENSATION [None]
  - MEDICATION ERROR [None]
  - PARAESTHESIA [None]
